FAERS Safety Report 8530063-3 (Version None)
Quarter: 2012Q3

REPORT INFORMATION
  Report Type: 
  Country: None (occurrence: None)
  Receive Date: 20120723
  Receipt Date: 20120718
  Transmission Date: 20120928
  Serious: Yes (Disabling)
  Sender: FDA-Public Use
  Company Number: PHHY2012NO061829

PATIENT
  Sex: Female

DRUGS (7)
  1. ZOMETA [Suspect]
     Indication: MULTIPLE MYELOMA
     Dosage: UNK
     Dates: start: 20090101, end: 20120101
  2. ADALAT [Concomitant]
  3. LOSARTAN POTASSIUM AND HYDROCHLOROTHIAZIDE [Concomitant]
  4. OXYCONTIN [Concomitant]
  5. ACETAMINOPHEN [Concomitant]
  6. CARVEDILOL [Concomitant]
  7. OXYCODONE HCL [Concomitant]

REACTIONS (7)
  - EXPOSED BONE IN JAW [None]
  - ABSCESS JAW [None]
  - OSTEONECROSIS OF JAW [None]
  - MOUTH ULCERATION [None]
  - BONE FISTULA [None]
  - TOOTH FRACTURE [None]
  - OSTEOLYSIS [None]
